FAERS Safety Report 8622938-1 (Version None)
Quarter: 2012Q3

REPORT INFORMATION
  Report Type: 
  Country: None (occurrence: None)
  Receive Date: 20120827
  Receipt Date: 20120823
  Transmission Date: 20120928
  Serious: Yes (Death, Hospitalization)
  Sender: FDA-Public Use
  Company Number: PHEH2012US015795

PATIENT
  Sex: Female
  Weight: 72.562 kg

DRUGS (3)
  1. CARBO MEDICINALIS [Concomitant]
     Dosage: 355 MG, UNK
     Route: 042
     Dates: start: 20120315, end: 20120723
  2. LAVSOL [Concomitant]
     Indication: LUNG NEOPLASM MALIGNANT
     Dosage: 325 MG, UNK
     Dates: start: 20120515, end: 20120723
  3. ZOMETA [Suspect]
     Dosage: 4 MG
     Route: 042
     Dates: start: 20120705

REACTIONS (4)
  - PNEUMOTHORAX [None]
  - HAEMOPTYSIS [None]
  - LUNG CANCER METASTATIC [None]
  - PULMONARY EMBOLISM [None]
